FAERS Safety Report 7899514-1 (Version None)
Quarter: 2011Q4

REPORT INFORMATION
  Report Type: 
  Country: None (occurrence: None)
  Receive Date: 20111107
  Receipt Date: 20110915
  Transmission Date: 20120403
  Serious: No
  Sender: FDA-Public Use
  Company Number: US-AMGEN-USASP2011047555

PATIENT
  Age: 57 Year
  Sex: Female

DRUGS (8)
  1. SYNTHROID [Concomitant]
     Dosage: 25 MUG, UNK
  2. VITAMIN D [Concomitant]
     Dosage: 400 IU, UNK
  3. FOLIC ACID [Concomitant]
     Dosage: 1 MG, UNK
  4. PLAQUENIL [Concomitant]
     Dosage: 200 MG, UNK
  5. ENBREL [Suspect]
     Indication: PRODUCT USED FOR UNKNOWN INDICATION
     Dosage: 50 MG, QWK
  6. LISINOPRIL [Concomitant]
     Dosage: 2.5 MG, UNK
  7. METHOTREXATE [Concomitant]
     Dosage: 2.5 MG, UNK
  8. IBUPROFEN [Concomitant]
     Dosage: 200 MG, UNK

REACTIONS (3)
  - BRONCHITIS [None]
  - DRY MOUTH [None]
  - CHAPPED LIPS [None]
